FAERS Safety Report 24301687 (Version 1)
Quarter: 2024Q3

REPORT INFORMATION
  Report Type: Spontaneous
  Country: GB (occurrence: GB)
  Receive Date: 20240910
  Receipt Date: 20240910
  Transmission Date: 20241017
  Serious: Yes (Other)
  Sender: ASTELLAS
  Company Number: GB-MHRA-EMIS-895-ae89ad3d-9cb6-441a-b28f-f43593ea782a

PATIENT
  Age: 88 Year
  Sex: Male
  Weight: 108 kg

DRUGS (2)
  1. MIRABEGRON [Suspect]
     Active Substance: MIRABEGRON
     Indication: Product used for unknown indication
     Dosage: ONE TO BE TAKEN EACH DAY
     Route: 065
     Dates: start: 20240606, end: 20240627
  2. MIRABEGRON [Suspect]
     Active Substance: MIRABEGRON
     Dosage: ONE TO BE TAKEN EACH DAY
     Route: 065

REACTIONS (1)
  - Depressed mood [Recovered/Resolved]
